FAERS Safety Report 18101598 (Version 1)
Quarter: 2020Q3

REPORT INFORMATION
  Report Type: Spontaneous
  Country: US (occurrence: US)
  Receive Date: 20200801
  Receipt Date: 20200801
  Transmission Date: 20201103
  Serious: No
  Sender: FDA-Public Use
  Company Number: US-TEVA-2020-US-1807975

PATIENT
  Age: 76 Year
  Sex: Female

DRUGS (3)
  1. CLONAZEPAM. [Suspect]
     Active Substance: CLONAZEPAM
     Dosage: 1 MG ACTAVIS
     Route: 065
  2. CLONAZEPAM. [Suspect]
     Active Substance: CLONAZEPAM
     Dosage: 1 MG TEVA^S; TOOK ONE HALF TWICE DAILY
     Route: 065
  3. CLONAZEPAM. [Suspect]
     Active Substance: CLONAZEPAM
     Dosage: TEVA^S 1 MG
     Route: 065
     Dates: start: 2020

REACTIONS (3)
  - Palpitations [Not Recovered/Not Resolved]
  - Heart rate irregular [Unknown]
  - Wrong technique in product usage process [Unknown]
